FAERS Safety Report 16802476 (Version 11)
Quarter: 2023Q4

REPORT INFORMATION
  Report Type: Other
  Country: CA (occurrence: CA)
  Receive Date: 20190912
  Receipt Date: 20231127
  Transmission Date: 20240109
  Serious: Yes (Life-Threatening, Other)
  Sender: FDA-Public Use
  Company Number: CA-002147023-PHHY2019CA136467

PATIENT
  Age: 35 Year
  Sex: Female

DRUGS (23)
  1. XOLAIR [Suspect]
     Active Substance: OMALIZUMAB
     Indication: Chronic spontaneous urticaria
     Route: 065
     Dates: start: 20190225
  2. XOLAIR [Suspect]
     Active Substance: OMALIZUMAB
     Route: 058
     Dates: start: 201906
  3. XOLAIR [Suspect]
     Active Substance: OMALIZUMAB
     Route: 058
  4. XOLAIR [Suspect]
     Active Substance: OMALIZUMAB
     Route: 058
     Dates: start: 20190830
  5. XOLAIR [Suspect]
     Active Substance: OMALIZUMAB
     Route: 058
     Dates: start: 20191004
  6. XOLAIR [Suspect]
     Active Substance: OMALIZUMAB
     Route: 058
     Dates: start: 20191018
  7. XOLAIR [Suspect]
     Active Substance: OMALIZUMAB
     Route: 058
     Dates: start: 20191101
  8. XOLAIR [Suspect]
     Active Substance: OMALIZUMAB
     Route: 058
     Dates: start: 20191115
  9. XOLAIR [Suspect]
     Active Substance: OMALIZUMAB
     Route: 058
     Dates: start: 20191118
  10. XOLAIR [Suspect]
     Active Substance: OMALIZUMAB
     Route: 058
     Dates: start: 20200320
  11. XOLAIR [Suspect]
     Active Substance: OMALIZUMAB
     Route: 058
  12. XOLAIR [Suspect]
     Active Substance: OMALIZUMAB
     Route: 058
  13. KETOTIFEN [Concomitant]
     Active Substance: KETOTIFEN
     Indication: Antiallergic therapy
     Dosage: 1 DF, TID
     Route: 048
     Dates: start: 20181206
  14. KETOTIFEN [Concomitant]
     Active Substance: KETOTIFEN
     Indication: Chronic spontaneous urticaria
  15. ZANTAC [Concomitant]
     Active Substance: RANITIDINE HYDROCHLORIDE
     Indication: Chronic spontaneous urticaria
     Dosage: 1 DF, TID
     Route: 065
     Dates: start: 20181206
  16. SINGULAIR [Concomitant]
     Active Substance: MONTELUKAST SODIUM
     Indication: Chronic spontaneous urticaria
     Dosage: 1 DF, QD
     Route: 048
     Dates: start: 20190520
  17. ASMANEX [Concomitant]
     Active Substance: MOMETASONE FUROATE
     Indication: Product used for unknown indication
     Dosage: 1 DF, BID
     Route: 055
     Dates: start: 20181206
  18. XYZAL [Concomitant]
     Active Substance: LEVOCETIRIZINE DIHYDROCHLORIDE
     Indication: Antiallergic therapy
     Dosage: 1 DF, QD
     Route: 048
     Dates: start: 20181206
  19. SYNTHROID [Concomitant]
     Active Substance: LEVOTHYROXINE SODIUM
     Indication: Product used for unknown indication
     Dosage: 1 DF, QD
     Route: 048
     Dates: start: 20181206
  20. CYTOMEL [Concomitant]
     Active Substance: LIOTHYRONINE SODIUM
     Indication: Product used for unknown indication
     Dosage: 1 DF, QD
     Route: 065
     Dates: start: 20181206
  21. ZOPICLONE [Concomitant]
     Active Substance: ZOPICLONE
     Indication: Product used for unknown indication
     Dosage: 1 DF, BID
     Route: 065
     Dates: start: 20181206
  22. BACLOFEN [Concomitant]
     Active Substance: BACLOFEN
     Indication: Chronic spontaneous urticaria
     Dosage: 1 DF, BID
     Route: 065
     Dates: start: 20181206
  23. VALIUM [Concomitant]
     Active Substance: DIAZEPAM
     Indication: Product used for unknown indication
     Route: 048
     Dates: start: 20181206

REACTIONS (27)
  - Ehlers-Danlos syndrome [Unknown]
  - Cerebral thrombosis [Unknown]
  - Suicidal ideation [Unknown]
  - Gastritis [Unknown]
  - Malaise [Unknown]
  - Pain [Unknown]
  - Memory impairment [Unknown]
  - Visual impairment [Unknown]
  - Nervous system disorder [Unknown]
  - Insomnia [Unknown]
  - Paraesthesia [Unknown]
  - Musculoskeletal stiffness [Unknown]
  - Fatigue [Unknown]
  - Somnolence [Unknown]
  - Dyspnoea [Unknown]
  - Asthma [Unknown]
  - Illness [Unknown]
  - Palpitations [Unknown]
  - Bone pain [Unknown]
  - Discomfort [Unknown]
  - Sensitivity to weather change [Unknown]
  - Injection site reaction [Unknown]
  - Anxiety [Unknown]
  - Therapeutic response shortened [Unknown]
  - Intentional product misuse [Unknown]
  - Urticaria [Not Recovered/Not Resolved]
  - Off label use [Unknown]

NARRATIVE: CASE EVENT DATE: 20190716
